FAERS Safety Report 23640599 (Version 1)
Quarter: 2024Q1

REPORT INFORMATION
  Report Type: Report from Study
  Country: US (occurrence: US)
  Receive Date: 20240318
  Receipt Date: 20240318
  Transmission Date: 20240410
  Serious: Yes (Other)
  Sender: FDA-Public Use
  Company Number: US-ABBVIE-5679266

PATIENT
  Sex: Male

DRUGS (4)
  1. SKYRIZI [Suspect]
     Active Substance: RISANKIZUMAB-RZAA
     Indication: Psoriasis
     Route: 058
     Dates: start: 20200314
  2. PRILOSEC [Concomitant]
     Active Substance: OMEPRAZOLE MAGNESIUM
     Indication: Product used for unknown indication
     Dosage: OTC 20 MG TABLET DR
  3. CARAFATE [Concomitant]
     Active Substance: SUCRALFATE
     Indication: Product used for unknown indication
     Dosage: 1 G/10 ML ORAL SUSP
     Route: 048
  4. MARSHMALLOW [Concomitant]
     Active Substance: ALCOHOL
     Indication: Product used for unknown indication

REACTIONS (3)
  - Testicular cancer metastatic [Unknown]
  - Psoriasis [Unknown]
  - Drug ineffective [Unknown]
